FAERS Safety Report 5941882-1 (Version None)
Quarter: 2008Q4

REPORT INFORMATION
  Report Type: 
  Country: None (occurrence: None)
  Receive Date: 20081104
  Receipt Date: 20081104
  Transmission Date: 20090506
  Serious: Yes (Other)
  Sender: FDA-Public Use
  Company Number: None

PATIENT
  Sex: Male
  Weight: 65.318 kg

DRUGS (1)
  1. RISPERIDONE [Suspect]
     Indication: CEREBRAL PALSY
     Dosage: 1.5 MG DAILY PO
     Route: 048
     Dates: start: 20081022, end: 20081031

REACTIONS (5)
  - ABNORMAL BEHAVIOUR [None]
  - AGGRESSION [None]
  - MENTAL DISORDER [None]
  - PRODUCT QUALITY ISSUE [None]
  - TREATMENT FAILURE [None]
